FAERS Safety Report 4319302-2 (Version None)
Quarter: 2004Q1

REPORT INFORMATION
  Report Type: 
  Country: None (occurrence: None)
  Receive Date: 20040316
  Receipt Date: 20040303
  Transmission Date: 20041129
  Serious: Yes (Hospitalization, Other)
  Sender: FDA-Public Use
  Company Number: HQWYE969608AUG03

PATIENT
  Age: 22 Year
  Sex: Male

DRUGS (1)
  1. ADVIL [Suspect]
     Indication: PYREXIA
     Dosage: TWO 200 MG TABLETS DAILY
     Route: 048
     Dates: start: 20030802, end: 20030803

REACTIONS (7)
  - ALANINE AMINOTRANSFERASE INCREASED [None]
  - ASPARTATE AMINOTRANSFERASE INCREASED [None]
  - BLOOD ALKALINE PHOSPHATASE INCREASED [None]
  - GAMMA-GLUTAMYLTRANSFERASE INCREASED [None]
  - HEPATIC ENZYME INCREASED [None]
  - PRURITUS [None]
  - RASH [None]
